FAERS Safety Report 10080388 (Version 1)
Quarter: 2014Q2

REPORT INFORMATION
  Report Type: Spontaneous
  Country: NL (occurrence: NL)
  Receive Date: 20140416
  Receipt Date: 20140416
  Transmission Date: 20141212
  Serious: Yes (Hospitalization)
  Sender: FDA-Public Use
  Company Number: NL-AMGEN-NLDSP2014026660

PATIENT
  Age: 83 Year
  Sex: Male

DRUGS (1)
  1. NEULASTA [Suspect]
     Indication: PROPHYLAXIS
     Dosage: INJVLST 10MG/ML EVERY 3 WEEKS
     Route: 058
     Dates: start: 20140321, end: 20140410

REACTIONS (1)
  - Adverse drug reaction [Unknown]
